FAERS Safety Report 4587742-2 (Version None)
Quarter: 2005Q1

REPORT INFORMATION
  Report Type: 
  Country: None (occurrence: None)
  Receive Date: 20050125
  Receipt Date: 20041004
  Transmission Date: 20050727
  Serious: No
  Sender: FDA-Public Use
  Company Number: USA030537800

PATIENT
  Age: 81 Year
  Sex: Female
  Weight: 64 kg

DRUGS (1)
  1. FORTEO [Suspect]
     Indication: OSTEOPOROSIS
     Dosage: 20 UG/DAY
     Dates: start: 20030101

REACTIONS (5)
  - COUGH [None]
  - DYSPHONIA [None]
  - INJECTION SITE HAEMORRHAGE [None]
  - PHARYNGOLARYNGEAL PAIN [None]
  - SNEEZING [None]
